FAERS Safety Report 7275176-1 (Version None)
Quarter: 2011Q1

REPORT INFORMATION
  Report Type: 
  Country: None (occurrence: None)
  Receive Date: 20110204
  Receipt Date: 20110131
  Transmission Date: 20110831
  Serious: Yes (Disabling, Other)
  Sender: FDA-Public Use
  Company Number: HU-ABBOTT-11P-076-0699742-00

PATIENT
  Sex: Male

DRUGS (3)
  1. APRANAX [Concomitant]
     Indication: ANKYLOSING SPONDYLITIS
     Route: 048
  2. HUMIRA [Suspect]
     Indication: ANKYLOSING SPONDYLITIS
     Route: 058
  3. METHYLPREDNISOLONE [Concomitant]
     Indication: PRODUCT USED FOR UNKNOWN INDICATION
     Dosage: 16-4 MG
     Route: 048
     Dates: start: 20100909, end: 20101010

REACTIONS (1)
  - PARESIS [None]
